FAERS Safety Report 11800973 (Version 6)
Quarter: 2016Q4

REPORT INFORMATION
  Report Type: Spontaneous
  Country: US (occurrence: US)
  Receive Date: 20151204
  Receipt Date: 20161130
  Transmission Date: 20170206
  Serious: Yes (Hospitalization)
  Sender: FDA-Public Use
  Company Number: US-JNJFOC-20150603766

PATIENT
  Age: 80 Year
  Sex: Male

DRUGS (5)
  1. IMBRUVICA [Suspect]
     Active Substance: IBRUTINIB
     Indication: LYMPHADENOPATHY
     Route: 048
     Dates: start: 20151022
  2. IMBRUVICA [Suspect]
     Active Substance: IBRUTINIB
     Indication: MANTLE CELL LYMPHOMA
     Dosage: 140 MG EVERY OTHER DAY ALTERNATING WITH 280 MG
     Route: 048
     Dates: start: 20140730, end: 201510
  3. IMBRUVICA [Suspect]
     Active Substance: IBRUTINIB
     Indication: LYMPHADENOPATHY
     Dosage: 140 MG EVERY OTHER DAY ALTERNATING WITH 280 MG
     Route: 048
     Dates: start: 20140730, end: 201510
  4. IMBRUVICA [Suspect]
     Active Substance: IBRUTINIB
     Indication: MANTLE CELL LYMPHOMA
     Route: 048
     Dates: start: 20151022
  5. NIACIN. [Concomitant]
     Active Substance: NIACIN

REACTIONS (13)
  - Dizziness [Recovering/Resolving]
  - Incorrect dose administered [Not Recovered/Not Resolved]
  - Decreased appetite [Recovering/Resolving]
  - Dry skin [Unknown]
  - Coronary artery bypass [Unknown]
  - Somnolence [Unknown]
  - Pain of skin [Unknown]
  - Obstructive airways disorder [Not Recovered/Not Resolved]
  - Fatigue [Unknown]
  - Oedema peripheral [Recovering/Resolving]
  - Asthenia [Unknown]
  - Dyspnoea [Not Recovered/Not Resolved]
  - Orthopnoea [Unknown]

NARRATIVE: CASE EVENT DATE: 20140730
